FAERS Safety Report 6744832-3 (Version None)
Quarter: 2010Q2

REPORT INFORMATION
  Report Type: 
  Country: None (occurrence: None)
  Receive Date: 20100527
  Receipt Date: 20100312
  Transmission Date: 20101027
  Serious: No
  Sender: FDA-Public Use
  Company Number: US-BRISTOL-MYERS SQUIBB COMPANY-15016231

PATIENT
  Age: 67 Year
  Sex: Male

DRUGS (2)
  1. ONGLYZA [Suspect]
  2. PROSCAR [Suspect]

REACTIONS (2)
  - POLLAKIURIA [None]
  - PROSTATOMEGALY [None]
